FAERS Safety Report 9351606 (Version 1)
Quarter: 2013Q2

REPORT INFORMATION
  Report Type: Report from Study
  Country: DE (occurrence: DE)
  Receive Date: 20130617
  Receipt Date: 20130617
  Transmission Date: 20140414
  Serious: Yes (Death)
  Sender: FDA-Public Use
  Company Number: PHHY2013DE061259

PATIENT
  Sex: Male
  Weight: 76 kg

DRUGS (1)
  1. AMN107 [Suspect]
     Dosage: UNK

REACTIONS (1)
  - Cardiac failure [Fatal]
